FAERS Safety Report 14871370 (Version 1)
Quarter: 2018Q2

REPORT INFORMATION
  Report Type: Spontaneous
  Country: None (occurrence: GB)
  Receive Date: 20180509
  Receipt Date: 20180509
  Transmission Date: 20180711
  Serious: Yes (Other)
  Sender: FDA-Public Use
  Company Number: GB-B. BRAUN MEDICAL INC.-2047489

PATIENT
  Age: 50 Year
  Sex: Female
  Weight: 73 kg

DRUGS (1)
  1. METRONIDAZOLE INJECTION USP (5 MG/ML) IN PAB? PLASTIC CONTAINER [Suspect]
     Active Substance: METRONIDAZOLE

REACTIONS (1)
  - Swelling face [Recovered/Resolved]

NARRATIVE: CASE EVENT DATE: 20180412
